FAERS Safety Report 7019609-4 (Version None)
Quarter: 2010Q3

REPORT INFORMATION
  Report Type: 
  Country: None (occurrence: None)
  Receive Date: 20100928
  Receipt Date: 20100928
  Transmission Date: 20110219
  Serious: Yes (Hospitalization)
  Sender: FDA-Public Use
  Company Number: None

PATIENT
  Age: 77 Year
  Sex: Female
  Weight: 52.3 kg

DRUGS (4)
  1. LOW DOSE DECITABINE [Suspect]
     Indication: MYELODYSPLASTIC SYNDROME
     Dosage: 10.5 MG 2X WEEKLY CYCLE 1 DAY 1 ; 10 MG 2X WEEKLY CYCLE 2 DAY 1
     Dates: start: 20100816
  2. LOW DOSE DECITABINE [Suspect]
     Indication: MYELODYSPLASTIC SYNDROME
     Dosage: 10.5 MG 2X WEEKLY CYCLE 1 DAY 1 ; 10 MG 2X WEEKLY CYCLE 2 DAY 1
     Dates: start: 20100913
  3. MEGACE [Concomitant]
  4. CIPRO [Concomitant]

REACTIONS (1)
  - PYREXIA [None]
